FAERS Safety Report 17274891 (Version 1)
Quarter: 2020Q1

REPORT INFORMATION
  Report Type: Report from Study
  Country: ES (occurrence: ES)
  Receive Date: 20200116
  Receipt Date: 20200116
  Transmission Date: 20200409
  Serious: Yes (Hospitalization)
  Sender: FDA-Public Use
  Company Number: ES-TEVA-2020-ES-1167635

PATIENT
  Age: 71 Year
  Sex: Female

DRUGS (6)
  1. RAMIPRIL (2497A) [Suspect]
     Active Substance: RAMIPRIL
     Indication: ISCHAEMIC CARDIOMYOPATHY
     Dosage: 2.5 MG PER DAY
     Route: 048
     Dates: start: 20190621, end: 20190720
  2. LYRICA 150 MG CAPSULAS DURAS, 100 CAPSULAS [Concomitant]
     Indication: BACK PAIN
     Dosage: 150 MG PER DAY
     Route: 048
     Dates: start: 201203
  3. ADIRO 100 MG COMPRIMIDOS GASTRORRESISTENTES EFG, 30 COMPRIMIDOS (POLIP [Concomitant]
     Active Substance: ASPIRIN
     Indication: ISCHAEMIC CARDIOMYOPATHY
     Dosage: 100 MG PER DAY
     Route: 048
     Dates: start: 20190621
  4. CLOPIDOGREL [Concomitant]
     Active Substance: CLOPIDOGREL BISULFATE
     Indication: ISCHAEMIC CARDIOMYOPATHY
     Dosage: 75 MG PER DAY
     Route: 048
     Dates: start: 20190621
  5. BISOPROLOL (2328A) [Concomitant]
     Active Substance: BISOPROLOL
     Indication: ISCHAEMIC CARDIOMYOPATHY
     Dosage: 2.5 MG
     Route: 048
     Dates: start: 20190621
  6. ATORVASTATINA (7400A) [Concomitant]
     Active Substance: ATORVASTATIN
     Indication: ISCHAEMIC CARDIOMYOPATHY
     Dosage: 40 MG PER DAY
     Route: 048
     Dates: start: 20190621

REACTIONS (2)
  - Diarrhoea [Recovered/Resolved]
  - Hypocalcaemia [Recovered/Resolved]

NARRATIVE: CASE EVENT DATE: 20190627
